FAERS Safety Report 8062490-5 (Version None)
Quarter: 2012Q1

REPORT INFORMATION
  Report Type: 
  Country: None (occurrence: None)
  Receive Date: 20120113
  Receipt Date: 20120104
  Transmission Date: 20120608
  Serious: Yes (Other)
  Sender: FDA-Public Use
  Company Number: 2012MA000212

PATIENT
  Age: 82 Year
  Sex: Male

DRUGS (6)
  1. ATORVASTATIN [Concomitant]
  2. FERROUS SULFATE TAB [Concomitant]
  3. AMLODIPINE [Concomitant]
  4. RAMIPRIL [Suspect]
     Indication: HYPERTENSION
     Dosage: 1.25 MG;PO
     Route: 048
     Dates: start: 20111116, end: 20111207
  5. ATENOLOL [Concomitant]
  6. LANSOPRAZOLE [Concomitant]

REACTIONS (2)
  - VASCULITIC RASH [None]
  - SKIN NECROSIS [None]
